FAERS Safety Report 6684429-7 (Version None)
Quarter: 2010Q2

REPORT INFORMATION
  Report Type: 
  Country: None (occurrence: None)
  Receive Date: 20100416
  Receipt Date: 20091218
  Transmission Date: 20101027
  Serious: Yes (Other)
  Sender: FDA-Public Use
  Company Number: FR-JNJFOC-20090900310

PATIENT
  Sex: Male

DRUGS (2)
  1. TAVANIC [Suspect]
     Indication: DRUG USE FOR UNKNOWN INDICATION
     Route: 065
  2. ANTIVITAMIN K [Interacting]
     Indication: DRUG USE FOR UNKNOWN INDICATION
     Route: 065

REACTIONS (3)
  - DRUG INTERACTION [None]
  - INTERNATIONAL NORMALISED RATIO INCREASED [None]
  - PULMONARY ALVEOLAR HAEMORRHAGE [None]
